FAERS Safety Report 21064258 (Version 1)
Quarter: 2022Q3

REPORT INFORMATION
  Report Type: Spontaneous
  Country: CN (occurrence: CN)
  Receive Date: 20220711
  Receipt Date: 20220711
  Transmission Date: 20221027
  Serious: Yes (Hospitalization, Other)
  Sender: FDA-Public Use
  Company Number: None

PATIENT
  Age: 38 Year
  Sex: Female
  Weight: 53 kg

DRUGS (8)
  1. IFOSFAMIDE [Suspect]
     Active Substance: IFOSFAMIDE
     Indication: Lymphoma
     Dosage: 2 G, QD, (D1-3; DOSAGE FORM: INJECTION)
     Route: 041
     Dates: start: 20220405, end: 20220407
  2. IFOSFAMIDE [Suspect]
     Active Substance: IFOSFAMIDE
     Dosage: 1.5 G, QD (D4)
     Route: 041
     Dates: start: 20220408, end: 20220408
  3. MESNA [Suspect]
     Active Substance: MESNA
     Indication: Lymphoma
     Dosage: 0.4 G, TID (D1-3; DOSAGE FORM: INJECTION)
     Route: 041
     Dates: start: 20220405, end: 20220407
  4. MESNA [Suspect]
     Active Substance: MESNA
     Dosage: 0.3 G, TID (D4)
     Route: 041
     Dates: start: 20220408, end: 20220408
  5. ETOPOSIDE [Suspect]
     Active Substance: ETOPOSIDE
     Indication: Lymphoma
     Dosage: 100 MG, QD (D1-3)
     Route: 041
     Dates: start: 20220405, end: 20220407
  6. ETOPOSIDE [Suspect]
     Active Substance: ETOPOSIDE
     Dosage: 150 MG, QD (D4)
     Route: 041
     Dates: start: 20220408, end: 20220408
  7. SINTILIMAB [Suspect]
     Active Substance: SINTILIMAB
     Indication: Lymphoma
     Dosage: 200 MG, QD (D5)
     Route: 041
     Dates: start: 20220409, end: 20220409
  8. CARBOPLATIN [Suspect]
     Active Substance: CARBOPLATIN
     Indication: Lymphoma
     Dosage: 550 MG, QD (D2)
     Route: 041
     Dates: start: 20220406, end: 20220406

REACTIONS (1)
  - Myelosuppression [Recovered/Resolved]

NARRATIVE: CASE EVENT DATE: 20220415
